FAERS Safety Report 10279599 (Version 1)
Quarter: 2014Q3

REPORT INFORMATION
  Report Type: Spontaneous
  Country: US (occurrence: None)
  Receive Date: 20140702
  Receipt Date: 20140702
  Transmission Date: 20150326
  Serious: Yes (Death, Hospitalization)
  Sender: FDA-Public Use
  Company Number: None

PATIENT
  Age: 67 Year
  Sex: Female
  Weight: 120.9 kg

DRUGS (3)
  1. TAXOL [Suspect]
     Active Substance: PACLITAXEL
  2. CARBOPLATIN. [Suspect]
     Active Substance: CARBOPLATIN
  3. LOVENOX [Concomitant]
     Active Substance: ENOXAPARIN SODIUM

REACTIONS (19)
  - Vomiting [None]
  - Decreased appetite [None]
  - Oesophagitis [None]
  - Ventricular extrasystoles [None]
  - Lymphocyte count increased [None]
  - Dehydration [None]
  - Blood bilirubin increased [None]
  - Nausea [None]
  - Abdominal pain [None]
  - Enterococcus test positive [None]
  - Neutrophil count decreased [None]
  - Atrial fibrillation [None]
  - Arthralgia [None]
  - White blood cell count decreased [None]
  - Depressed level of consciousness [None]
  - Muscular weakness [None]
  - Fatigue [None]
  - Dyspnoea [None]
  - Thrombocytopenia [None]

NARRATIVE: CASE EVENT DATE: 20140609
